FAERS Safety Report 6656724-9 (Version None)
Quarter: 2010Q1

REPORT INFORMATION
  Report Type: 
  Country: None (occurrence: None)
  Receive Date: 20100329
  Receipt Date: 20100319
  Transmission Date: 20100710
  Serious: Yes (Hospitalization)
  Sender: FDA-Public Use
  Company Number: BR-ABBOTT-10P-020-0631770-00

PATIENT
  Sex: Male
  Weight: 56 kg

DRUGS (4)
  1. HUMIRA [Suspect]
     Indication: RHEUMATOID ARTHRITIS
     Route: 058
     Dates: start: 20080108, end: 20100112
  2. PARACETAMOL + CARISOPRODOL + ANHYDROUS CAFFEINE (TORSILAX) [Concomitant]
     Indication: PAIN
     Route: 048
     Dates: start: 20020101
  3. OMEPRAZOLE [Concomitant]
     Indication: GASTRIC DISORDER
     Route: 048
     Dates: start: 20020101
  4. DEFLAZACORT [Concomitant]
     Indication: RHEUMATOID ARTHRITIS
     Dosage: 2 EVERY 2 DAYS
     Route: 048
     Dates: start: 20020101

REACTIONS (27)
  - APPLICATION SITE ERYTHEMA [None]
  - APPLICATION SITE INFECTION [None]
  - ARTHRALGIA [None]
  - ASTHENIA [None]
  - BLOOD PRESSURE ABNORMAL [None]
  - DECREASED APPETITE [None]
  - DRUG INEFFECTIVE [None]
  - DYSPNOEA [None]
  - DYSSTASIA [None]
  - ERYTHEMA [None]
  - FALL [None]
  - FURUNCLE [None]
  - GENERALISED ERYTHEMA [None]
  - IMMUNODEFICIENCY [None]
  - INDURATION [None]
  - INGUINAL HERNIA [None]
  - JOINT SWELLING [None]
  - LUNG INFECTION [None]
  - MOBILITY DECREASED [None]
  - OEDEMA PERIPHERAL [None]
  - POOR QUALITY DRUG ADMINISTERED [None]
  - PRURITUS [None]
  - RASH MACULAR [None]
  - SKIN INFECTION [None]
  - SKIN LACERATION [None]
  - TACHYCARDIA [None]
  - WEIGHT DECREASED [None]
